FAERS Safety Report 7622317-X (Version None)
Quarter: 2011Q3

REPORT INFORMATION
  Report Type: 
  Country: None (occurrence: None)
  Receive Date: 20110711
  Receipt Date: 20110704
  Transmission Date: 20111222
  Serious: Yes (Death, Hospitalization)
  Sender: FDA-Public Use
  Company Number: KR-JNJFOC-20110407774

PATIENT
  Age: 64 Year
  Sex: Male
  Weight: 68.5 kg

DRUGS (4)
  1. DACOGEN [Suspect]
     Indication: MYELODYSPLASTIC SYNDROME
     Dosage: 20 MG/M2, INTRAVENOUS
     Route: 042
     Dates: start: 20110617
  2. DACOGEN [Suspect]
     Indication: MYELODYSPLASTIC SYNDROME
     Dosage: 20 MG/M2, INTRAVENOUS
     Route: 042
     Dates: start: 20110323, end: 20110327
  3. AMLODIPINE BESYLATE AND OLMESARTAN MEDOXOMIL [Suspect]
  4. JANUMET [Suspect]

REACTIONS (6)
  - SEPSIS [None]
  - MYOCARDIAL ISCHAEMIA [None]
  - DYSPNOEA [None]
  - ANGINA PECTORIS [None]
  - ACIDOSIS [None]
  - PANCYTOPENIA [None]
